FAERS Safety Report 20881757 (Version 2)
Quarter: 2022Q3

REPORT INFORMATION
  Report Type: Spontaneous
  Country: DE (occurrence: DE)
  Receive Date: 20220527
  Receipt Date: 20220704
  Transmission Date: 20221027
  Serious: Yes (Hospitalization, Other)
  Sender: FDA-Public Use
  Company Number: DE-LUPIN PHARMACEUTICALS INC.-2022-07619

PATIENT
  Age: 8 Day
  Sex: Female
  Weight: .525 kg

DRUGS (5)
  1. BETAMETHASONE [Suspect]
     Active Substance: BETAMETHASONE
     Indication: Product used for unknown indication
     Dosage: UNK
     Route: 064
  2. HYDROCORTISONE [Suspect]
     Active Substance: HYDROCORTISONE
     Indication: Hypotension
     Dosage: ADMINISTERED POSTNATALLY
     Route: 065
  3. VORICONAZOLE [Suspect]
     Active Substance: VORICONAZOLE
     Indication: Trichosporon infection
     Dosage: 6 MILLIGRAM/KILOGRAM, QD
     Route: 065
  4. VORICONAZOLE [Suspect]
     Active Substance: VORICONAZOLE
     Dosage: 4 MILLIGRAM/KILOGRAM, QD FOR EVERY 12 HR
     Route: 065
  5. VORICONAZOLE [Suspect]
     Active Substance: VORICONAZOLE
     Dosage: 16 MILLIGRAM/KILOGRAM, QD FOR EVERY 12 HR
     Route: 065

REACTIONS (3)
  - Trichosporon infection [Recovered/Resolved]
  - Hepatotoxicity [Unknown]
  - Foetal exposure during pregnancy [Unknown]
